FAERS Safety Report 14741633 (Version 4)
Quarter: 2019Q2

REPORT INFORMATION
  Report Type: Spontaneous
  Country: US (occurrence: US)
  Receive Date: 20180410
  Receipt Date: 20190423
  Transmission Date: 20190711
  Serious: Yes (Other)
  Sender: FDA-Public Use
  Company Number: US-ASTRAZENECA-2018SE42964

PATIENT
  Age: 24871 Day
  Sex: Male

DRUGS (18)
  1. NEXIUM [Suspect]
     Active Substance: ESOMEPRAZOLE MAGNESIUM
     Route: 048
     Dates: start: 201001, end: 201803
  2. PREVACID [Suspect]
     Active Substance: LANSOPRAZOLE
     Route: 065
     Dates: start: 201001, end: 201803
  3. VOLTAREN [Concomitant]
     Active Substance: DICLOFENAC SODIUM
     Dates: start: 20150916
  4. NEXIUM 24HR [Suspect]
     Active Substance: ESOMEPRAZOLE MAGNESIUM
     Route: 048
     Dates: start: 201001, end: 201803
  5. PRILOSEC [Suspect]
     Active Substance: OMEPRAZOLE MAGNESIUM
     Indication: GASTROOESOPHAGEAL REFLUX DISEASE
     Route: 048
     Dates: start: 20170630, end: 20170730
  6. PRILOSEC OTC [Suspect]
     Active Substance: OMEPRAZOLE MAGNESIUM
     Indication: GASTROOESOPHAGEAL REFLUX DISEASE
     Route: 048
     Dates: start: 2013
  7. DEXILANT [Suspect]
     Active Substance: DEXLANSOPRAZOLE
     Route: 065
     Dates: start: 201001, end: 201803
  8. PRILOSEC [Suspect]
     Active Substance: OMEPRAZOLE MAGNESIUM
     Indication: GASTROOESOPHAGEAL REFLUX DISEASE
     Route: 048
     Dates: start: 20150916
  9. CLOPIDOGREL [Concomitant]
     Active Substance: CLOPIDOGREL BISULFATE
     Dates: start: 20150916
  10. PRILOSEC [Suspect]
     Active Substance: OMEPRAZOLE MAGNESIUM
     Indication: GASTROOESOPHAGEAL REFLUX DISEASE
     Route: 048
     Dates: start: 201001, end: 201803
  11. PROTONIX [Suspect]
     Active Substance: PANTOPRAZOLE SODIUM
     Route: 065
     Dates: start: 201001, end: 201803
  12. ASPIRIN. [Concomitant]
     Active Substance: ASPIRIN
     Dates: start: 20150916
  13. BUPROPION. [Concomitant]
     Active Substance: BUPROPION
     Dates: start: 20150916
  14. PRAVASTATIN SODIUM. [Concomitant]
     Active Substance: PRAVASTATIN SODIUM
     Dates: start: 20150916
  15. PRILOSEC OTC [Suspect]
     Active Substance: OMEPRAZOLE MAGNESIUM
     Indication: GASTROOESOPHAGEAL REFLUX DISEASE
     Route: 048
     Dates: start: 201001, end: 201803
  16. PREVACID 24 HR [Suspect]
     Active Substance: LANSOPRAZOLE
     Route: 065
     Dates: start: 201001, end: 201803
  17. CALCITRIOL. [Concomitant]
     Active Substance: CALCITRIOL
     Dates: start: 20150916
  18. VESICARE [Concomitant]
     Active Substance: SOLIFENACIN SUCCINATE
     Dates: start: 20150916

REACTIONS (4)
  - Chronic kidney disease [Not Recovered/Not Resolved]
  - Renal injury [Unknown]
  - Acute kidney injury [Not Recovered/Not Resolved]
  - Hyperparathyroidism secondary [Unknown]

NARRATIVE: CASE EVENT DATE: 20150916
